FAERS Safety Report 11812430 (Version 5)
Quarter: 2016Q1

REPORT INFORMATION
  Report Type: Spontaneous
  Country: JP (occurrence: JP)
  Receive Date: 20151208
  Receipt Date: 20160301
  Transmission Date: 20160525
  Serious: Yes (Life-Threatening, Hospitalization, Other)
  Sender: FDA-Public Use
  Company Number: JP-GILEAD-2015-0184916

PATIENT
  Age: 75 Year
  Sex: Female
  Weight: 57 kg

DRUGS (17)
  1. MUCODYNE [Concomitant]
     Active Substance: CARBOCYSTEINE
     Dosage: 1500 MG, TID AFTER EACH MEAL
     Route: 048
  2. PLAVIX [Concomitant]
     Active Substance: CLOPIDOGREL BISULFATE
     Dosage: 50 MG, QD AFTER BREAKFAST
     Route: 048
     Dates: start: 20141218
  3. NORVASC [Concomitant]
     Active Substance: AMLODIPINE BESYLATE
     Dosage: 5 MG, QD AFTER LUNCH
     Route: 048
     Dates: start: 20151022
  4. FORTEO [Concomitant]
     Active Substance: TERIPARATIDE
     Dosage: 600 UG, QD
     Route: 058
     Dates: start: 20150212
  5. HARVONI [Suspect]
     Active Substance: LEDIPASVIR\SOFOSBUVIR
     Indication: CHRONIC HEPATITIS C
     Dosage: 1 DF, QD AFTER DINNER
     Route: 048
     Dates: start: 20151015, end: 20151120
  6. LASIX [Concomitant]
     Active Substance: FUROSEMIDE
     Dosage: 10 MG, QD AFTER BREAKFAST (TABLET CRUSHED)
     Route: 048
  7. GASTER [Concomitant]
     Active Substance: FAMOTIDINE
     Dosage: 20 MG, QD AFTER BREAKFAST
     Route: 048
     Dates: start: 20151014
  8. PREDNISOLONE. [Concomitant]
     Active Substance: PREDNISOLONE
     Dosage: 30 MG, UNK
     Route: 048
  9. KLARICID                           /00984601/ [Concomitant]
     Active Substance: CLARITHROMYCIN
     Dosage: 200 MG, QD AT BEDTIME
     Route: 048
  10. NU-LOTAN [Concomitant]
     Active Substance: LOSARTAN POTASSIUM
     Dosage: 50 MG, QD AFTER BREAKFAST
     Route: 048
  11. CARERAM [Concomitant]
     Active Substance: IGURATIMOD
     Dosage: 25 MG, QD AFTER BREAKFAST
     Route: 048
     Dates: start: 20141218
  12. VASOLAN                            /00014302/ [Concomitant]
     Active Substance: VERAPAMIL HYDROCHLORIDE
     Dosage: 80 MG, BID AFTER BREAKFAST AND DINNER
     Route: 048
  13. MUCOSTA [Concomitant]
     Active Substance: REBAMIPIDE
     Dosage: 300 MG, TID AFTER EACH MEAL
     Route: 048
  14. NEUER [Concomitant]
     Active Substance: CETRAXATE HYDROCHLORIDE
     Dosage: 400 MG, BID AFTER BREAKFAST AND DINNER
     Route: 048
  15. PREDNISOLONE. [Concomitant]
     Active Substance: PREDNISOLONE
     Dosage: 1.5 MG, BID AFTER BREAKFAST AND LUNCH (0 AT WAKE TIME, 1 IN AM, 0.5 AT NOON, 0 IN PM, 0 AT BEDTIME)
     Route: 048
     Dates: start: 20141220
  16. PREDNISOLONE. [Concomitant]
     Active Substance: PREDNISOLONE
     Dosage: 20 MG, UNK
     Route: 048
     Dates: start: 20160104
  17. TETRAMIDE [Concomitant]
     Active Substance: MIANSERIN
     Dosage: 30 MG, QD AT BEDTIME
     Route: 048

REACTIONS (1)
  - Interstitial lung disease [Recovered/Resolved]

NARRATIVE: CASE EVENT DATE: 20151116
